FAERS Safety Report 23592899 (Version 1)
Quarter: 2024Q1

REPORT INFORMATION
  Report Type: Spontaneous
  Country: US (occurrence: None)
  Receive Date: 20240303
  Receipt Date: 20240303
  Transmission Date: 20240410
  Serious: No
  Sender: FDA-Public Use
  Company Number: None

PATIENT
  Age: 69 Year
  Sex: Female
  Weight: 66.6 kg

DRUGS (10)
  1. RECLAST [Suspect]
     Active Substance: ZOLEDRONIC ACID
     Indication: Osteoporosis
     Dosage: OTHER FREQUENCY : ONCE A YEAR;?
     Dates: start: 20240226, end: 20240226
  2. EXEMESTANE [Concomitant]
     Active Substance: EXEMESTANE
  3. SYMBICORT [Concomitant]
     Active Substance: BUDESONIDE\FORMOTEROL FUMARATE DIHYDRATE
  4. VENTOLIN [Concomitant]
     Active Substance: ALBUTEROL SULFATE
  5. MELOXICAM [Concomitant]
     Active Substance: MELOXICAM
  6. azaelic acid gel [Concomitant]
  7. AMMONIUM LACTATE [Concomitant]
     Active Substance: AMMONIUM LACTATE
  8. VITAMINS [Concomitant]
     Active Substance: VITAMINS
  9. ASPIRIN [Concomitant]
     Active Substance: ASPIRIN
  10. VITAMIN D3 [Concomitant]
     Active Substance: CHOLECALCIFEROL

REACTIONS (15)
  - Headache [None]
  - Pyrexia [None]
  - Myalgia [None]
  - Arthralgia [None]
  - Infusion related reaction [None]
  - Decreased appetite [None]
  - Musculoskeletal chest pain [None]
  - Spinal pain [None]
  - Chest pain [None]
  - Dyspnoea [None]
  - Loss of personal independence in daily activities [None]
  - Constipation [None]
  - Drug ineffective [None]
  - Nausea [None]
  - Vomiting [None]

NARRATIVE: CASE EVENT DATE: 20240227
